FAERS Safety Report 11653540 (Version 2)
Quarter: 2015Q4

REPORT INFORMATION
  Report Type: Report from Study
  Country: IE (occurrence: IE)
  Receive Date: 20151022
  Receipt Date: 20151119
  Transmission Date: 20160304
  Serious: Yes (Death, Hospitalization)
  Sender: FDA-Public Use
  Company Number: IE-BAYER-2015-417504

PATIENT
  Age: 77 Year
  Sex: Male

DRUGS (2)
  1. STIVARGA [Suspect]
     Active Substance: REGORAFENIB
     Indication: COLORECTAL CANCER METASTATIC
     Dosage: 160 MG, QD
     Route: 048
  2. STIVARGA [Suspect]
     Active Substance: REGORAFENIB
     Indication: COLORECTAL CANCER METASTATIC
     Dosage: 120 MG, OM
     Route: 048
     Dates: start: 20150903

REACTIONS (3)
  - Tachycardia [None]
  - Fatigue [None]
  - Death [Fatal]

NARRATIVE: CASE EVENT DATE: 20150905
